FAERS Safety Report 16715910 (Version 1)
Quarter: 2019Q3

REPORT INFORMATION
  Report Type: Report from Study
  Country: FI (occurrence: FI)
  Receive Date: 20190819
  Receipt Date: 20190819
  Transmission Date: 20191005
  Serious: Yes (Hospitalization, Other)
  Sender: FDA-Public Use
  Company Number: FI-MYLANLABS-2019M1076284

PATIENT
  Sex: Male

DRUGS (2)
  1. LEPONEX [Suspect]
     Active Substance: CLOZAPINE
     Dosage: UNK, QD
     Dates: start: 2019
  2. LEPONEX [Suspect]
     Active Substance: CLOZAPINE
     Indication: PRODUCT USED FOR UNKNOWN INDICATION
     Dosage: 400 MILLIGRAM, QD
     Dates: end: 2019

REACTIONS (4)
  - Psychotic disorder [Unknown]
  - Blood creatinine increased [Unknown]
  - Neutropenia [Unknown]
  - Renal failure [Unknown]

NARRATIVE: CASE EVENT DATE: 2019
